FAERS Safety Report 16744624 (Version 1)
Quarter: 2019Q3

REPORT INFORMATION
  Report Type: Spontaneous
  Country: CN (occurrence: CN)
  Receive Date: 20190827
  Receipt Date: 20190827
  Transmission Date: 20191005
  Serious: Yes (Other)
  Sender: FDA-Public Use
  Company Number: CN-PFIZER INC-2019362260

PATIENT
  Sex: Female

DRUGS (1)
  1. ANZATAX (CLONAZEPAM) [Suspect]
     Active Substance: CLONAZEPAM
     Indication: CERVIX CARCINOMA
     Dosage: 30 MG, UNK

REACTIONS (4)
  - Dyspnoea [Recovering/Resolving]
  - Chest discomfort [Recovering/Resolving]
  - Oxygen saturation decreased [Recovering/Resolving]
  - Flushing [Recovering/Resolving]
